FAERS Safety Report 25493678 (Version 1)
Quarter: 2025Q2

REPORT INFORMATION
  Report Type: Report from Study
  Country: US (occurrence: US)
  Receive Date: 20250630
  Receipt Date: 20250630
  Transmission Date: 20250716
  Serious: Yes (Hospitalization, Other)
  Sender: BAYER HEALTHCARE PHARMACEUTICALS INC.
  Company Number: US-BAYER-2025A076591

PATIENT
  Age: 57 Year
  Sex: Female
  Weight: 99.773 kg

DRUGS (56)
  1. ADEMPAS [Suspect]
     Active Substance: RIOCIGUAT
     Indication: Pulmonary arterial hypertension
     Dates: start: 20220927
  2. ADEMPAS [Suspect]
     Active Substance: RIOCIGUAT
     Indication: Pulmonary arterial hypertension
     Dosage: 1 MG, TID
     Route: 048
  3. MACROBID [Concomitant]
     Active Substance: NITROFURANTOIN\NITROFURANTOIN MONOHYDRATE
  4. ATORVASTATIN CALCIUM [Concomitant]
     Active Substance: ATORVASTATIN CALCIUM
  5. POTASSIUM CHLORIDE EXTENDED RELEASE [Concomitant]
     Active Substance: POTASSIUM CHLORIDE
  6. SPIRIVA [Concomitant]
     Active Substance: TIOTROPIUM BROMIDE MONOHYDRATE
  7. KEPPRA [Concomitant]
     Active Substance: LEVETIRACETAM
  8. FLUTICASONE PROPIONATE [Concomitant]
     Active Substance: FLUTICASONE PROPIONATE
  9. METHOCARBAMOL [Concomitant]
     Active Substance: METHOCARBAMOL
  10. SODIUM CHLORIDE [Concomitant]
     Active Substance: SODIUM CHLORIDE
  11. COLACE [Concomitant]
     Active Substance: DOCUSATE SODIUM
  12. CLARITIN [Concomitant]
     Active Substance: LORATADINE
  13. DICYCLOMINE HYDROCHLORIDE [Concomitant]
     Active Substance: DICYCLOMINE HYDROCHLORIDE
  14. ERGOCALCIFEROL [Concomitant]
     Active Substance: ERGOCALCIFEROL
  15. SPIRONOLACTONE [Concomitant]
     Active Substance: SPIRONOLACTONE
  16. VOLTAREN ARTHRITIS PAIN [Concomitant]
     Active Substance: DICLOFENAC SODIUM
  17. PEPCID [Concomitant]
     Active Substance: FAMOTIDINE
  18. VISTARIL [Concomitant]
     Active Substance: HYDROXYZINE PAMOATE
  19. PERCOCET [Concomitant]
     Active Substance: ACETAMINOPHEN\OXYCODONE HYDROCHLORIDE
  20. PROTONIX [Concomitant]
     Active Substance: PANTOPRAZOLE SODIUM
  21. LACOSAMIDE [Concomitant]
     Active Substance: LACOSAMIDE
  22. ONDANSETRON [Concomitant]
     Active Substance: ONDANSETRON
  23. TORSEMIDE [Concomitant]
     Active Substance: TORSEMIDE
  24. RISPERIDONE [Concomitant]
     Active Substance: RISPERIDONE
  25. JARDIANCE [Concomitant]
     Active Substance: EMPAGLIFLOZIN
  26. VERAPAMIL [Concomitant]
     Active Substance: VERAPAMIL HYDROCHLORIDE
  27. SUCRALFATE [Concomitant]
     Active Substance: SUCRALFATE
  28. ALBUTEROL SULFATE [Concomitant]
     Active Substance: ALBUTEROL SULFATE
  29. ELIQUIS [Concomitant]
     Active Substance: APIXABAN
  30. FOLIC ACID [Concomitant]
     Active Substance: FOLIC ACID
  31. VIMPAT [Concomitant]
     Active Substance: LACOSAMIDE
  32. CELEBREX [Concomitant]
     Active Substance: CELECOXIB
  33. PREDNISONE [Concomitant]
     Active Substance: PREDNISONE
  34. CALCIUM CITRATE\VITAMIN D [Concomitant]
     Active Substance: CALCIUM CITRATE\VITAMIN D
  35. PROVERA [Concomitant]
     Active Substance: MEDROXYPROGESTERONE ACETATE
  36. METHOTREXATE [Concomitant]
     Active Substance: METHOTREXATE
  37. TRAMADOL HCL [Concomitant]
     Active Substance: TRAMADOL HYDROCHLORIDE
  38. DOFETILIDE [Concomitant]
     Active Substance: DOFETILIDE
  39. CELLCEPT [Concomitant]
     Active Substance: MYCOPHENOLATE MOFETIL
  40. MELATONIN [Concomitant]
     Active Substance: MELATONIN
  41. SYNTHROID [Concomitant]
     Active Substance: LEVOTHYROXINE SODIUM
  42. CYCLOBENZAPRINE HYDROCHLORIDE [Concomitant]
     Active Substance: CYCLOBENZAPRINE HYDROCHLORIDE
  43. LATANOPROST [Concomitant]
     Active Substance: LATANOPROST
  44. SOTALOL [Concomitant]
     Active Substance: SOTALOL
  45. OXYGEN [Concomitant]
     Active Substance: OXYGEN
  46. GABAPENTIN [Concomitant]
     Active Substance: GABAPENTIN
  47. VITAMINS [Concomitant]
     Active Substance: VITAMINS
  48. SYMBICORT [Concomitant]
     Active Substance: BUDESONIDE\FORMOTEROL FUMARATE DIHYDRATE
  49. SERTRALINE HYDROCHLORIDE [Concomitant]
     Active Substance: SERTRALINE HYDROCHLORIDE
  50. OZEMPIC [Concomitant]
     Active Substance: SEMAGLUTIDE
  51. REMERON [Concomitant]
     Active Substance: MIRTAZAPINE
  52. PRILOSEC OTC [Concomitant]
     Active Substance: OMEPRAZOLE MAGNESIUM
  53. ORENITRAM [Concomitant]
     Active Substance: TREPROSTINIL
  54. MYRBETRIQ [Concomitant]
     Active Substance: MIRABEGRON
  55. ROBAXIN [Concomitant]
     Active Substance: METHOCARBAMOL
  56. MOTRIN IB [Concomitant]
     Active Substance: IBUPROFEN

REACTIONS (6)
  - Oropharyngeal pain [None]
  - Fall [None]
  - Hypotension [None]
  - Loss of consciousness [None]
  - Retrograde amnesia [None]
  - Migraine [None]

NARRATIVE: CASE EVENT DATE: 20250527
